FAERS Safety Report 4906073-1 (Version None)
Quarter: 2006Q1

REPORT INFORMATION
  Report Type: 
  Country: None (occurrence: None)
  Receive Date: 20060207
  Receipt Date: 20060207
  Transmission Date: 20060701
  Serious: Yes (Hospitalization)
  Sender: FDA-Public Use
  Company Number: None

PATIENT
  Age: 82 Year
  Sex: Male
  Weight: 85.6 kg

DRUGS (15)
  1. WARFARIN [Suspect]
     Indication: ATRIAL FIBRILLATION
     Dosage: 2 MG ON MONDAY 4 MG ALL OTHER DAYS DECREASE
     Dates: start: 20051227, end: 20051230
  2. LORAZEPAM [Concomitant]
  3. COUMADIN [Concomitant]
  4. ACETAMINOPHEN [Concomitant]
  5. CITALOPRAM HYDROBROMIDE [Concomitant]
  6. PROMETHAZINE [Concomitant]
  7. HCL [Concomitant]
  8. ATENOLOL [Concomitant]
  9. POTASSIUM CHLORIDE [Concomitant]
  10. FORMOTEROL FUMARATE INHL [Concomitant]
  11. ALBUTEROL SULFATE AND IPRATROPIUM BROMIDE [Concomitant]
  12. NUTRITION SUPL ENSURE/VANILLA PWD [Concomitant]
  13. FUROSEMIDE [Concomitant]
  14. OMEPRAZOLE [Concomitant]
  15. SENNOSIDES [Concomitant]

REACTIONS (1)
  - EPISTAXIS [None]
